FAERS Safety Report 17483860 (Version 1)
Quarter: 2020Q1

REPORT INFORMATION
  Report Type: Report from Study
  Country: US (occurrence: US)
  Receive Date: 20200302
  Receipt Date: 20200302
  Transmission Date: 20200409
  Serious: Yes (Death)
  Sender: FDA-Public Use
  Company Number: US-ACTELION-A-NJ2016-146234

PATIENT
  Age: 64 Year
  Sex: Female

DRUGS (11)
  1. HYDROCODONE/ACETAMINOPHEN [Concomitant]
     Active Substance: ACETAMINOPHEN\HYDROCODONE
  2. NORTRIPTYLINE [Concomitant]
     Active Substance: NORTRIPTYLINE
  3. OPSUMIT [Suspect]
     Active Substance: MACITENTAN
     Indication: PULMONARY ARTERIAL HYPERTENSION
     Dosage: 10 MG, QD
     Route: 048
     Dates: start: 20161101
  4. ADCIRCA [Concomitant]
     Active Substance: TADALAFIL
  5. RANITIDINE. [Concomitant]
     Active Substance: RANITIDINE
  6. ADCIRCA [Concomitant]
     Active Substance: TADALAFIL
  7. MYCOPHENOLATE [Concomitant]
     Active Substance: MYCOPHENOLIC ACID
  8. SIMVASTATIN. [Concomitant]
     Active Substance: SIMVASTATIN
  9. IBUPROFEN. [Concomitant]
     Active Substance: IBUPROFEN
  10. VALSARTAN. [Concomitant]
     Active Substance: VALSARTAN
  11. CYCLOBENZAPRINE. [Concomitant]
     Active Substance: CYCLOBENZAPRINE

REACTIONS (13)
  - Death [Fatal]
  - Confusional state [Unknown]
  - Fatigue [Unknown]
  - Pruritus [Unknown]
  - Pain in extremity [Unknown]
  - Decreased appetite [Unknown]
  - Multiple allergies [Unknown]
  - Insomnia [Unknown]
  - Walking distance test abnormal [Unknown]
  - Somnolence [Unknown]
  - Epistaxis [Unknown]
  - Nasal congestion [Unknown]
  - Dizziness [Unknown]

NARRATIVE: CASE EVENT DATE: 20161101
